FAERS Safety Report 5142510-8 (Version None)
Quarter: 2006Q4

REPORT INFORMATION
  Report Type: 
  Country: None (occurrence: None)
  Receive Date: 20061027
  Receipt Date: 20061006
  Transmission Date: 20070319
  Serious: Yes (Hospitalization, Other)
  Sender: FDA-Public Use
  Company Number: DE200609004220

PATIENT
  Age: 14 Year
  Sex: Male
  Weight: 60.6 kg

DRUGS (1)
  1. STRATTERA [Suspect]
     Indication: ATTENTION DEFICIT/HYPERACTIVITY DISORDER
     Dosage: 60 MG, DAILY (1/D), ORAL
     Route: 048
     Dates: start: 20050101

REACTIONS (14)
  - ANXIETY [None]
  - BLOOD BILIRUBIN INCREASED [None]
  - CONVULSION [None]
  - HYPOCHLORAEMIA [None]
  - HYPOKALAEMIC SYNDROME [None]
  - METABOLIC ALKALOSIS [None]
  - MUSCULOSKELETAL STIFFNESS [None]
  - PARAESTHESIA [None]
  - RENAL FAILURE ACUTE [None]
  - RESPIRATORY RATE DECREASED [None]
  - TETANY [None]
  - THIRST [None]
  - TUBULOINTERSTITIAL NEPHRITIS [None]
  - VOMITING [None]
